FAERS Safety Report 6359448-0 (Version None)
Quarter: 2009Q3

REPORT INFORMATION
  Report Type: 
  Country: None (occurrence: None)
  Receive Date: 20090917
  Receipt Date: 20090903
  Transmission Date: 20100115
  Serious: Yes (Hospitalization)
  Sender: FDA-Public Use
  Company Number: BE-PFIZER INC-2009264000

PATIENT
  Age: 42 Year

DRUGS (3)
  1. EXEMESTANE [Suspect]
     Indication: BREAST CANCER
     Dosage: 25 MG, 1X/DAY
     Route: 048
     Dates: start: 20080109
  2. TRIPTORELIN [Suspect]
     Indication: BREAST CANCER
     Dosage: 3.75 MG
     Route: 030
     Dates: start: 20070823
  3. ALPRAZOLAM [Suspect]
     Indication: DEPRESSION
     Dosage: UNK
     Dates: start: 20071128

REACTIONS (4)
  - BRAIN CONTUSION [None]
  - DEPRESSION [None]
  - ELECTROENCEPHALOGRAM ABNORMAL [None]
  - FALL [None]
